FAERS Safety Report 6303943-7 (Version None)
Quarter: 2009Q3

REPORT INFORMATION
  Report Type: 
  Country: None (occurrence: None)
  Receive Date: 20090810
  Receipt Date: 20090810
  Transmission Date: 20100115
  Serious: Yes (Hospitalization, Other)
  Sender: FDA-Public Use
  Company Number: None

PATIENT
  Age: 31 Year
  Sex: Female
  Weight: 72.5755 kg

DRUGS (1)
  1. BENZONATATE [Suspect]
     Indication: SINUSITIS
     Dosage: 1 PILL ONCE PO
     Route: 048
     Dates: start: 20090808, end: 20090808

REACTIONS (2)
  - DRUG HYPERSENSITIVITY [None]
  - HEART RATE DECREASED [None]
